FAERS Safety Report 6703612-5 (Version None)
Quarter: 2010Q2

REPORT INFORMATION
  Report Type: 
  Country: None (occurrence: None)
  Receive Date: 20100430
  Receipt Date: 20100426
  Transmission Date: 20101027
  Serious: Yes (Death, Other)
  Sender: FDA-Public Use
  Company Number: PHHY2010GB27072

PATIENT
  Sex: Male

DRUGS (9)
  1. CLOZARIL [Suspect]
     Indication: PSYCHOTIC DISORDER
     Dosage: UNK
     Dates: start: 20060630
  2. CLOZARIL [Suspect]
     Indication: PARKINSON'S DISEASE
  3. OMEPRAZOLE [Concomitant]
  4. CO-BENELDOPA [Concomitant]
     Indication: PARKINSON'S DISEASE
     Dosage: 125 X 6/D
  5. DIGOXIN [Concomitant]
  6. EPHEDRINE [Concomitant]
     Indication: ORTHOSTATIC HYPOTENSION
  7. FLUDROCORTISONE [Concomitant]
  8. SIMVASTATIN [Concomitant]
  9. CLOPIDOGREL [Concomitant]

REACTIONS (3)
  - ATRIAL FIBRILLATION [None]
  - MYOCARDIAL ISCHAEMIA [None]
  - PARKINSON'S DISEASE [None]
